FAERS Safety Report 14124315 (Version 2)
Quarter: 2017Q4

REPORT INFORMATION
  Report Type: Spontaneous
  Country: US (occurrence: US)
  Receive Date: 20171025
  Receipt Date: 20171109
  Transmission Date: 20180321
  Serious: No
  Sender: FDA-Public Use
  Company Number: US-PFIZER INC-2017454420

PATIENT
  Sex: Male
  Weight: 72.57 kg

DRUGS (11)
  1. VITAMIN D3 [Concomitant]
     Active Substance: CHOLECALCIFEROL
     Dosage: 1000 IU, DAILY
     Route: 048
  2. VITAMIN D3 [Concomitant]
     Active Substance: CHOLECALCIFEROL
     Dosage: 10000 IU, DAILY (3 X PER WEEK)
     Route: 048
  3. LAMISIL [Concomitant]
     Active Substance: TERBINAFINE HYDROCHLORIDE
     Dosage: 250 MG, UNK
     Route: 048
  4. TESTOSTERONE. [Concomitant]
     Active Substance: TESTOSTERONE
     Indication: BLOOD TESTOSTERONE DECREASED
     Dosage: UNK, (INJECTED EVERY 10 WEEKS)
     Dates: start: 2013
  5. VITAMIN D [Concomitant]
     Active Substance: CHOLECALCIFEROL
     Indication: VITAMIN D DECREASED
     Dosage: UNK, (3000 ONE PILL BY MOUTH EVERY 2 DAYS)
     Route: 048
  6. GENOTROPIN MQ [Suspect]
     Active Substance: SOMATROPIN
     Indication: HYPOGONADISM MALE
     Dosage: UNK
  7. DEPO-TESTOSTERONE [Concomitant]
     Active Substance: TESTOSTERONE CYPIONATE
     Route: 030
  8. GENOTROPIN MQ [Suspect]
     Active Substance: SOMATROPIN
     Indication: HORMONE REPLACEMENT THERAPY
     Dosage: 1.4 MG, 1X/DAY
     Dates: start: 2013
  9. CLARITIN [Concomitant]
     Active Substance: LORATADINE
     Indication: HYPERSENSITIVITY
     Dosage: UNK, AS NEEDED (ONCE EVERY DAY)
     Route: 048
  10. GENOTROPIN MQ [Suspect]
     Active Substance: SOMATROPIN
     Indication: GROWTH HORMONE DEFICIENCY
     Dosage: 0.4 MG, DAILY
     Route: 058
     Dates: start: 2014
  11. AVEED [Concomitant]
     Active Substance: TESTOSTERONE UNDECANOATE
     Dosage: UNK (750 MG/3 ML, 1 INJECTION AT BASELINE, THEN 4 WEEKS LATER, AND THEN EVERY 10 WEEKS THEREAFTER)
     Route: 030

REACTIONS (3)
  - Sleep apnoea syndrome [Unknown]
  - Drug dose omission [Not Recovered/Not Resolved]
  - Drug ineffective [Unknown]
